FAERS Safety Report 11834994 (Version 1)
Quarter: 2015Q4

REPORT INFORMATION
  Report Type: Spontaneous
  Country: GB (occurrence: GB)
  Receive Date: 20151215
  Receipt Date: 20151215
  Transmission Date: 20160305
  Serious: Yes (Other)
  Sender: FDA-Public Use
  Company Number: GB-SUN PHARMACEUTICAL INDUSTRIES LTD-2015RR-107667

PATIENT

DRUGS (4)
  1. DEXTROSE. [Concomitant]
     Active Substance: DEXTROSE
     Indication: HYPERINSULINISM
     Route: 065
  2. OCTREOTIDE. [Suspect]
     Active Substance: OCTREOTIDE
     Indication: HYPERINSULINISM
     Route: 058
  3. GLUCAGON. [Concomitant]
     Active Substance: GLUCAGON
     Indication: HYPERINSULINISM
     Route: 042
  4. DIAZOXIDE [Concomitant]
     Active Substance: DIAZOXIDE
     Indication: HYPERINSULINISM
     Route: 065

REACTIONS (1)
  - Liver disorder [Unknown]
